FAERS Safety Report 16840291 (Version 2)
Quarter: 2020Q1

REPORT INFORMATION
  Report Type: Spontaneous
  Country: GB (occurrence: GB)
  Receive Date: 20190923
  Receipt Date: 20200109
  Transmission Date: 20200409
  Serious: Yes (Hospitalization, Other)
  Sender: FDA-Public Use
  Company Number: GB-SA-2019SA173615

PATIENT
  Age: 28 Year
  Sex: Female

DRUGS (1)
  1. LEMTRADA [Suspect]
     Active Substance: ALEMTUZUMAB
     Indication: MULTIPLE SCLEROSIS
     Dosage: 12 MG, UNK
     Route: 041
     Dates: start: 201804

REACTIONS (8)
  - Abdominal pain upper [Not Recovered/Not Resolved]
  - Condition aggravated [Recovering/Resolving]
  - Burning sensation [Not Recovered/Not Resolved]
  - Rash [Recovering/Resolving]
  - Limb injury [Recovering/Resolving]
  - Diarrhoea [Not Recovered/Not Resolved]
  - Vasculitis [Recovering/Resolving]
  - Decreased appetite [Not Recovered/Not Resolved]

NARRATIVE: CASE EVENT DATE: 201907
